FAERS Safety Report 7148617-8 (Version None)
Quarter: 2010Q4

REPORT INFORMATION
  Report Type: 
  Country: None (occurrence: None)
  Receive Date: 20101209
  Receipt Date: 20100714
  Transmission Date: 20110411
  Serious: Yes (Hospitalization)
  Sender: FDA-Public Use
  Company Number: A0868191A

PATIENT
  Age: 42 Year
  Sex: Female

DRUGS (2)
  1. AVANDAMET [Suspect]
     Route: 048
     Dates: start: 20030101, end: 20051101
  2. AVANDIA [Suspect]
     Dosage: 4MG TWICE PER DAY
     Route: 048
     Dates: start: 20060301, end: 20070601

REACTIONS (1)
  - CARDIAC FAILURE CONGESTIVE [None]
